FAERS Safety Report 13599883 (Version 1)
Quarter: 2017Q2

REPORT INFORMATION
  Report Type: Spontaneous
  Country: US (occurrence: US)
  Receive Date: 20170601
  Receipt Date: 20170601
  Transmission Date: 20170830
  Serious: No
  Sender: FDA-Public Use
  Company Number: US-RAPTOR-RAP-001036-2017

PATIENT
  Age: 1 Year
  Sex: Male

DRUGS (1)
  1. PROCYSBI DELAYED-RELEASE [Suspect]
     Active Substance: CYSTEAMINE BITARTRATE
     Indication: CYSTINOSIS
     Dosage: 575 MG, EVERY 12 HOURS
     Dates: start: 20160804

REACTIONS (5)
  - Dehydration [Unknown]
  - Rash [Unknown]
  - Pollakiuria [Unknown]
  - Labelled drug-drug interaction medication error [Recovered/Resolved]
  - Vomiting [Not Recovered/Not Resolved]

NARRATIVE: CASE EVENT DATE: 20160804
